FAERS Safety Report 6496216-3 (Version None)
Quarter: 2009Q4

REPORT INFORMATION
  Report Type: 
  Country: None (occurrence: None)
  Receive Date: 20091214
  Receipt Date: 20091026
  Transmission Date: 20100525
  Serious: No
  Sender: FDA-Public Use
  Company Number: US-BRISTOL-MYERS SQUIBB COMPANY-14831085

PATIENT
  Age: 22 Year
  Sex: Male
  Weight: 118 kg

DRUGS (2)
  1. ABILIFY [Suspect]
     Dates: end: 20090801
  2. PROZAC [Concomitant]

REACTIONS (2)
  - DYSKINESIA [None]
  - PAIN IN EXTREMITY [None]
